FAERS Safety Report 4472181-5 (Version None)
Quarter: 2004Q4

REPORT INFORMATION
  Report Type: 
  Country: None (occurrence: None)
  Receive Date: 20041012
  Receipt Date: 20041003
  Transmission Date: 20050328
  Serious: Yes (Hospitalization)
  Sender: FDA-Public Use
  Company Number: IL-MERCK-0410ISR00001

PATIENT
  Age: 56 Year
  Sex: Female

DRUGS (4)
  1. VIOXX [Suspect]
     Indication: BACK PAIN
     Route: 048
     Dates: start: 20010101, end: 20010101
  2. VIOXX [Suspect]
     Route: 048
     Dates: start: 20040701, end: 20040701
  3. VIOXX [Suspect]
     Route: 048
     Dates: start: 20010101, end: 20010101
  4. VIOXX [Suspect]
     Route: 048
     Dates: start: 20040701, end: 20040701

REACTIONS (8)
  - BURNING SENSATION [None]
  - CHEST PAIN [None]
  - DRUG INEFFECTIVE [None]
  - HEADACHE [None]
  - HYPERHIDROSIS [None]
  - MENOPAUSE [None]
  - MOUTH HAEMORRHAGE [None]
  - TACHYCARDIA [None]
